FAERS Safety Report 5862703-1 (Version None)
Quarter: 2008Q3

REPORT INFORMATION
  Report Type: 
  Country: None (occurrence: None)
  Receive Date: 20080818
  Receipt Date: 20080619
  Transmission Date: 20090109
  Serious: No
  Sender: FDA-Public Use
  Company Number: WAES 0806USA07576

PATIENT
  Age: 62 Year
  Sex: Female

DRUGS (9)
  1. JANUVIA [Suspect]
     Indication: TYPE 2 DIABETES MELLITUS
     Dosage: DAILY/PO : 100 MG/DAILY/PO : DAILY/PO
     Route: 048
     Dates: start: 20080401, end: 20080501
  2. JANUVIA [Suspect]
     Indication: TYPE 2 DIABETES MELLITUS
     Dosage: DAILY/PO : 100 MG/DAILY/PO : DAILY/PO
     Route: 048
     Dates: start: 20080501, end: 20080609
  3. JANUVIA [Suspect]
     Indication: TYPE 2 DIABETES MELLITUS
     Dosage: DAILY/PO : 100 MG/DAILY/PO : DAILY/PO
     Route: 048
     Dates: start: 20080609
  4. COZAAR [Concomitant]
  5. SYNTHROID [Concomitant]
  6. TRICOR [Concomitant]
  7. GLIMEPIRIDE [Concomitant]
  8. INDAPAMIDE [Concomitant]
  9. METFORMIN HCL [Concomitant]

REACTIONS (3)
  - DRUG INEFFECTIVE [None]
  - OVERDOSE [None]
  - WRONG TECHNIQUE IN DRUG USAGE PROCESS [None]
